FAERS Safety Report 9879979 (Version 3)
Quarter: 2014Q4

REPORT INFORMATION
  Report Type: Spontaneous
  Country: IT (occurrence: IT)
  Receive Date: 20140207
  Receipt Date: 20141119
  Transmission Date: 20150529
  Serious: Yes (Hospitalization)
  Sender: FDA-Public Use
  Company Number: IT-MERCK-1402ITA000906

PATIENT
  Age: 72 Year
  Sex: Male

DRUGS (8)
  1. JANUVIA [Suspect]
     Active Substance: SITAGLIPTIN PHOSPHATE
     Indication: TYPE 2 DIABETES MELLITUS
     Dosage: 50 MG, DAILY
     Route: 048
     Dates: start: 20111212, end: 20140121
  2. NOVO-NORM [Concomitant]
     Active Substance: REPAGLINIDE
     Dosage: 4 MG, UNK
     Route: 048
  3. CARDIRENE [Concomitant]
     Active Substance: ASPIRIN DL-LYSINE
     Dosage: 160 DOSE UNITS
     Route: 048
  4. OLPREZIDE [Concomitant]
     Active Substance: HYDROCHLOROTHIAZIDE\OLMESARTAN MEDOXOMIL
  5. LOFTYL [Concomitant]
     Dosage: 600 DOSE UNIT
  6. TORVAST [Concomitant]
     Active Substance: ATORVASTATIN
     Dosage: 10 MG, DAILY
     Dates: start: 2012
  7. LANTUS [Concomitant]
     Active Substance: INSULIN GLARGINE
     Dosage: 8 DOSE UNITS
  8. ACARBOSIO TECNIGEN (ACARBOSE) [Concomitant]
     Dosage: 200 MG, UNK
     Route: 048

REACTIONS (1)
  - Cholecystitis infective [Recovered/Resolved with Sequelae]

NARRATIVE: CASE EVENT DATE: 20140108
